FAERS Safety Report 26120244 (Version 2)
Quarter: 2025Q4

REPORT INFORMATION
  Report Type: Spontaneous
  Country: EU (occurrence: EU)
  Receive Date: 20251204
  Receipt Date: 20251217
  Transmission Date: 20260117
  Serious: Yes (Death)
  Sender: ROCHE
  Company Number: EU-BoehringerIngelheim-2025-BI-111187

PATIENT
  Age: 84 Year
  Sex: Female
  Weight: 62 kg

DRUGS (1)
  1. METALYSE [Suspect]
     Active Substance: TENECTEPLASE
     Indication: Cerebral artery occlusion

REACTIONS (2)
  - Cerebral ischaemia [Fatal]
  - Haemorrhagic cerebral infarction [Fatal]

NARRATIVE: CASE EVENT DATE: 20250901
